FAERS Safety Report 11655557 (Version 1)
Quarter: 2015Q4

REPORT INFORMATION
  Report Type: Spontaneous
  Country: US (occurrence: US)
  Receive Date: 20151023
  Receipt Date: 20151023
  Transmission Date: 20160304
  Serious: Yes (Other)
  Sender: FDA-Public Use
  Company Number: US-BAYER-2015-446547

PATIENT

DRUGS (1)
  1. CIPRO [Suspect]
     Active Substance: CIPROFLOXACIN HYDROCHLORIDE
     Indication: PROSTATE INFECTION
     Dosage: 500 MG, BID

REACTIONS (8)
  - Depression [None]
  - Derealisation [None]
  - Anxiety [None]
  - Intentional product misuse [None]
  - Depersonalisation [None]
  - Asthenia [None]
  - Insomnia [None]
  - Irritability [None]
